FAERS Safety Report 6446362-5 (Version None)
Quarter: 2009Q4

REPORT INFORMATION
  Report Type: 
  Country: None (occurrence: None)
  Receive Date: 20091119
  Receipt Date: 20091118
  Transmission Date: 20100525
  Serious: Yes (Life-Threatening, Hospitalization)
  Sender: FDA-Public Use
  Company Number: DE-WYE-G04663209

PATIENT
  Sex: Male

DRUGS (6)
  1. TAZOBAC EF [Suspect]
     Indication: INFECTION PROPHYLAXIS
     Route: 042
     Dates: start: 20091001, end: 20091001
  2. ASTONIN-H [Concomitant]
  3. FUROSEMIDE [Concomitant]
  4. KALINOR [Concomitant]
  5. NEXIUM [Concomitant]
  6. EMBOLEX [Concomitant]
     Route: 058

REACTIONS (2)
  - HAEMORRHAGE [None]
  - THROMBOCYTOPENIA [None]
